FAERS Safety Report 8065495-3 (Version None)
Quarter: 2012Q1

REPORT INFORMATION
  Report Type: 
  Country: None (occurrence: None)
  Receive Date: 20120124
  Receipt Date: 20120111
  Transmission Date: 20120608
  Serious: No
  Sender: FDA-Public Use
  Company Number: US-ROXANE LABORATORIES, INC.-2010-RO-00147RO

PATIENT
  Sex: Male

DRUGS (6)
  1. PREDNISONE [Concomitant]
  2. CALCIUM CARBONATE [Concomitant]
  3. ATENOLOL [Concomitant]
     Dosage: 50 MG
  4. CHOLECALCIFEROL [Concomitant]
  5. CYCLOPHOSPHAMIDE [Suspect]
     Indication: WAGNER'S DISEASE
     Dosage: 125 MG
     Dates: start: 20090801
  6. CYCLOPHOSPHAMIDE [Suspect]
     Dosage: 125 MG

REACTIONS (5)
  - ABDOMINAL PAIN UPPER [None]
  - PRODUCT COLOUR ISSUE [None]
  - ABDOMINAL DISCOMFORT [None]
  - MUSCLE SPASMS [None]
  - ABDOMINAL DISTENSION [None]
